FAERS Safety Report 9995953 (Version 1)
Quarter: 2014Q1

REPORT INFORMATION
  Report Type: Spontaneous
  Country: US (occurrence: US)
  Receive Date: 20140311
  Receipt Date: 20140311
  Transmission Date: 20141002
  Serious: No
  Sender: FDA-Public Use
  Company Number: US-BAYER-2014-034685

PATIENT
  Age: 56 Year
  Sex: Female

DRUGS (1)
  1. ESTRADIOL HEMIHYDRATE [Suspect]
     Dosage: 0.075 MG, UNK
     Route: 062
     Dates: start: 2009

REACTIONS (7)
  - Product adhesion issue [None]
  - Hot flush [None]
  - Product physical consistency issue [None]
  - Vulvovaginal dryness [None]
  - Skin disorder [None]
  - Drug ineffective [None]
  - Extra dose administered [None]
